FAERS Safety Report 8168005-5 (Version None)
Quarter: 2012Q1

REPORT INFORMATION
  Report Type: 
  Country: None (occurrence: None)
  Receive Date: 20120103
  Receipt Date: 20111105
  Transmission Date: 20120608
  Serious: No
  Sender: FDA-Public Use
  Company Number: AE-2011-003144

PATIENT
  Age: 58 Year
  Sex: Female
  Weight: 58.9676 kg

DRUGS (8)
  1. INCIVEK [Suspect]
     Dosage: 2250 MG (750 MG,1 IN 8 HR),ORAL
     Route: 048
     Dates: start: 20111031
  2. PEGASYS [Concomitant]
  3. RIBAVIRIN [Concomitant]
  4. LORAZEPAM [Concomitant]
  5. CELEXA [Concomitant]
  6. AMITRIPTYLINE HCL [Concomitant]
  7. BACLOFEN [Concomitant]
  8. OMEPRAZOLE [Concomitant]

REACTIONS (1)
  - RASH PRURITIC [None]
